FAERS Safety Report 23644994 (Version 1)
Quarter: 2024Q1

REPORT INFORMATION
  Report Type: Spontaneous
  Country: US (occurrence: US)
  Receive Date: 20240318
  Receipt Date: 20240318
  Transmission Date: 20240410
  Serious: No
  Sender: FDA-Public Use
  Company Number: US-SANDOZ-SDZ2024US028770

PATIENT
  Sex: Male

DRUGS (1)
  1. BETAMETHASONE VALERATE [Suspect]
     Active Substance: BETAMETHASONE VALERATE
     Indication: Rash
     Dosage: UNK
     Route: 061
     Dates: start: 20240309, end: 20240309

REACTIONS (3)
  - Application site burn [Unknown]
  - Application site erythema [Unknown]
  - Product formulation issue [Unknown]

NARRATIVE: CASE EVENT DATE: 20240309
